FAERS Safety Report 25571907 (Version 1)
Quarter: 2025Q3

REPORT INFORMATION
  Report Type: Spontaneous
  Country: EU (occurrence: EU)
  Receive Date: 20250717
  Receipt Date: 20250717
  Transmission Date: 20251021
  Serious: Yes (Hospitalization, Other)
  Sender: AUROBINDO
  Company Number: EU-AEMPS-1719274

PATIENT
  Age: 69 Year
  Sex: Female

DRUGS (1)
  1. IBUPROFEN [Suspect]
     Active Substance: IBUPROFEN
     Indication: Pain
     Dosage: 400 MILLIGRAM, 3 TIMES A DAY (1 TABLET OF 400MG EVERY 8 HOURS)
     Route: 048
     Dates: start: 20250523, end: 20250602

REACTIONS (4)
  - Duodenal ulcer [Recovering/Resolving]
  - Melaena [Recovered/Resolved]
  - Abdominal pain upper [Recovered/Resolved]
  - Anaemia [Recovering/Resolving]

NARRATIVE: CASE EVENT DATE: 20250528
